FAERS Safety Report 9568104 (Version 1)
Quarter: 2013Q3

REPORT INFORMATION
  Report Type: Spontaneous
  Country: US (occurrence: US)
  Receive Date: 20130930
  Receipt Date: 20130930
  Transmission Date: 20140515
  Serious: No
  Sender: FDA-Public Use
  Company Number: US-AMGEN-USASP2013055946

PATIENT
  Age: 51 Year
  Sex: Female
  Weight: 73.92 kg

DRUGS (1)
  1. ENBREL [Suspect]
     Indication: RHEUMATOID ARTHRITIS
     Dosage: 50 MG, EVERY WEEK ON WENSDAY
     Route: 058
     Dates: start: 20130401

REACTIONS (6)
  - Hypersensitivity [Recovered/Resolved]
  - Perianal erythema [Recovered/Resolved]
  - Inflammation [Recovered/Resolved]
  - Secretion discharge [Recovered/Resolved]
  - Skin fissures [Recovered/Resolved]
  - Bacterial infection [Recovered/Resolved]
